FAERS Safety Report 13085932 (Version 1)
Quarter: 2017Q1

REPORT INFORMATION
  Report Type: Not Available
  Country: US (occurrence: US)
  Receive Date: 20170104
  Receipt Date: 20170104
  Transmission Date: 20170428
  Serious: Yes (Other)
  Sender: FDA-Public Use
  Company Number: US-IDTAUSTRALIA-2016-US-010536

PATIENT
  Age: 25 Year
  Sex: Female

DRUGS (3)
  1. CLARITHROMYCIN EXTENDED RELEASE [Suspect]
     Active Substance: CLARITHROMYCIN
     Dosage: UNKNOWN
     Route: 065
  2. AMOXICILLIN. [Suspect]
     Active Substance: AMOXICILLIN
     Dosage: UNKNOWN
     Route: 065
  3. ESOMEPRAZOLE [Concomitant]
     Active Substance: ESOMEPRAZOLE
     Dosage: UNKNOWN
     Route: 065

REACTIONS (1)
  - Enterocolitis haemorrhagic [Recovered/Resolved]
